FAERS Safety Report 7073204-X (Version None)
Quarter: 2010Q4

REPORT INFORMATION
  Report Type: 
  Country: None (occurrence: None)
  Receive Date: 20101029
  Receipt Date: 20100714
  Transmission Date: 20110411
  Serious: No
  Sender: FDA-Public Use
  Company Number: A0858929A

PATIENT
  Age: 62 Year
  Sex: Female

DRUGS (8)
  1. ADVAIR DISKUS 100/50 [Suspect]
     Indication: ASTHMA
     Dosage: 1PUFF TWICE PER DAY
     Route: 055
     Dates: start: 20000101
  2. SINGULAIR [Concomitant]
  3. LOTENSIN [Concomitant]
  4. TOPROL-XL [Concomitant]
  5. NEURONTIN [Concomitant]
  6. DARVOCET [Concomitant]
  7. SOMA [Concomitant]
  8. VICODIN [Concomitant]

REACTIONS (1)
  - DYSPNOEA [None]
